FAERS Safety Report 23993190 (Version 1)
Quarter: 2024Q2

REPORT INFORMATION
  Report Type: Spontaneous
  Country: JP (occurrence: JP)
  Receive Date: 20240620
  Receipt Date: 20240620
  Transmission Date: 20240716
  Serious: Yes (Other)
  Sender: FDA-Public Use
  Company Number: JP-GSKNCCC-Case-02002125_AE-84466

PATIENT

DRUGS (1)
  1. FLUTICASONE FUROATE [Suspect]
     Active Substance: FLUTICASONE FUROATE
     Indication: Nasal congestion
     Dosage: UNK

REACTIONS (5)
  - Retinal haemorrhage [Unknown]
  - Retinal vein occlusion [Unknown]
  - Bell^s palsy [Unknown]
  - Epistaxis [Recovered/Resolved]
  - Visual acuity reduced [Unknown]
